FAERS Safety Report 8050358-X (Version None)
Quarter: 2012Q1

REPORT INFORMATION
  Report Type: 
  Country: None (occurrence: None)
  Receive Date: 20120103
  Receipt Date: 20100319
  Transmission Date: 20120608
  Serious: Yes (Life-Threatening)
  Sender: FDA-Public Use
  Company Number: 2010022107

PATIENT
  Sex: Male

DRUGS (1)
  1. BERINERT [Suspect]
     Indication: HEREDITARY ANGIOEDEMA
     Dosage: (500 OR 1000 IU INTRAVENOUS (NOT OTHERWISE SPECIFIED))
     Route: 042

REACTIONS (4)
  - PULMONARY EMBOLISM [None]
  - CONDITION AGGRAVATED [None]
  - HEREDITARY ANGIOEDEMA [None]
  - APPARENT LIFE THREATENING EVENT [None]
